FAERS Safety Report 18530223 (Version 2)
Quarter: 2021Q1

REPORT INFORMATION
  Report Type: Report from Study
  Country: US (occurrence: US)
  Receive Date: 20201120
  Receipt Date: 20210108
  Transmission Date: 20210419
  Serious: No
  Sender: FDA-Public Use
  Company Number: NVSC2020US304610

PATIENT
  Age: 36 Year
  Sex: Male

DRUGS (1)
  1. COSENTYX [Suspect]
     Active Substance: SECUKINUMAB
     Indication: PSORIASIS
     Dosage: 300 MG, OTHER (300MG Q WEEK FOR FIVE WEEKS AND THEN Q4 WEEKS)
     Route: 058
     Dates: start: 20200920

REACTIONS (3)
  - Dry skin [Unknown]
  - Skin discolouration [Unknown]
  - Psoriasis [Unknown]

NARRATIVE: CASE EVENT DATE: 20201101
